FAERS Safety Report 19485575 (Version 1)
Quarter: 2021Q3

REPORT INFORMATION
  Report Type: Spontaneous
  Country: US (occurrence: US)
  Receive Date: 20210702
  Receipt Date: 20210702
  Transmission Date: 20211014
  Serious: Yes (Other)
  Sender: FDA-Public Use
  Company Number: US-ROCHE-2860343

PATIENT
  Sex: Female

DRUGS (2)
  1. XOLAIR [Suspect]
     Active Substance: OMALIZUMAB
     Indication: ASTHMA
     Dosage: ONGOING ? YES
     Route: 058
     Dates: start: 20210319
  2. XOLAIR [Suspect]
     Active Substance: OMALIZUMAB

REACTIONS (10)
  - Back pain [Unknown]
  - Ear pain [Unknown]
  - Loss of personal independence in daily activities [Unknown]
  - Dysstasia [Unknown]
  - Pain in extremity [Unknown]
  - Ankylosing spondylitis [Unknown]
  - Fatigue [Unknown]
  - Arthralgia [Unknown]
  - Neck pain [Unknown]
  - Musculoskeletal stiffness [Unknown]
